FAERS Safety Report 18146471 (Version 1)
Quarter: 2020Q3

REPORT INFORMATION
  Report Type: Spontaneous
  Country: CA (occurrence: CA)
  Receive Date: 20200813
  Receipt Date: 20200813
  Transmission Date: 20201103
  Serious: Yes (Other)
  Sender: FDA-Public Use
  Company Number: CA-ANIPHARMA-2020-CA-001531

PATIENT
  Age: 71 Year
  Sex: Male
  Weight: 104 kg

DRUGS (4)
  1. CALCIUM CHLORIDE. [Suspect]
     Active Substance: CALCIUM CHLORIDE
     Dosage: 1 DF DAILY
     Route: 065
  2. CANDESARTAN CILEXETIL. [Suspect]
     Active Substance: CANDESARTAN CILEXETIL
     Indication: PRODUCT USED FOR UNKNOWN INDICATION
     Dosage: 16 MG DAILY
     Route: 048
  3. DEXEDRINE [Suspect]
     Active Substance: DEXTROAMPHETAMINE SULFATE
     Dosage: 15 MG DAILY
     Route: 065
  4. XYREM [Suspect]
     Active Substance: SODIUM OXYBATE
     Dosage: 2.25 G BID
     Route: 065

REACTIONS (6)
  - Prostate cancer [Unknown]
  - Bladder disorder [Unknown]
  - Incontinence [Unknown]
  - Product administration error [Unknown]
  - Urinary incontinence [Unknown]
  - Prostatic specific antigen increased [Unknown]
